FAERS Safety Report 5094968-0 (Version None)
Quarter: 2006Q3

REPORT INFORMATION
  Report Type: 
  Country: None (occurrence: None)
  Receive Date: 20060901
  Receipt Date: 20051125
  Transmission Date: 20061208
  Serious: Yes (Hospitalization, Other)
  Sender: FDA-Public Use
  Company Number: PHFR2005GB03862

PATIENT
  Age: 60 Year
  Sex: Male
  Weight: 101.6 kg

DRUGS (11)
  1. ZOMETA [Suspect]
     Indication: METASTASES TO BONE
     Dosage: 4 MG, QMO
     Route: 042
     Dates: start: 20040201, end: 20060201
  2. SODIUM SULFATE [Concomitant]
     Indication: CONSTIPATION
  3. METHADONE HCL [Concomitant]
     Indication: PAIN
  4. ISTIN [Concomitant]
     Indication: HYPERTENSION
  5. ENALAPRIL [Concomitant]
     Indication: HYPERTENSION
  6. GTN-S [Concomitant]
     Indication: ANGINA PECTORIS
  7. GLICLAZIDE [Concomitant]
     Indication: DIABETES MELLITUS NON-INSULIN-DEPENDENT
  8. MELOXICAM [Concomitant]
     Indication: PAIN
  9. AMITRIPTYLINE HCL [Concomitant]
  10. MOVICOL [Concomitant]
     Indication: CONSTIPATION
  11. CO-DANTHRAMER [Concomitant]
     Indication: CONSTIPATION

REACTIONS (20)
  - BONE DEBRIDEMENT [None]
  - BREATH ODOUR [None]
  - CONTUSION [None]
  - DYSGEUSIA [None]
  - GINGIVAL BLEEDING [None]
  - GINGIVAL PAIN [None]
  - IMPAIRED HEALING [None]
  - LOCALISED INFECTION [None]
  - MANDIBULECTOMY [None]
  - ORAL DISCHARGE [None]
  - ORAL SURGERY [None]
  - OSTEITIS [None]
  - OSTEONECROSIS [None]
  - PAIN IN JAW [None]
  - PURULENCE [None]
  - SURGERY [None]
  - TEETH BRITTLE [None]
  - TOOTH DISORDER [None]
  - TOOTH EXTRACTION [None]
  - TOOTH LOSS [None]
